FAERS Safety Report 19889565 (Version 1)
Quarter: 2021Q3

REPORT INFORMATION
  Report Type: Spontaneous
  Country: FR (occurrence: FR)
  Receive Date: 20210927
  Receipt Date: 20210927
  Transmission Date: 20211014
  Serious: Yes (Hospitalization, Congenital Anomaly, Other)
  Sender: FDA-Public Use
  Company Number: FR-ABBVIE-21K-056-4089248-00

PATIENT
  Sex: Male

DRUGS (3)
  1. SPECIAFOLDINE [Concomitant]
     Active Substance: FOLIC ACID
     Indication: PRODUCT USED FOR UNKNOWN INDICATION
  2. VITAMIN K [Concomitant]
     Active Substance: PHYTONADIONE
     Indication: PRODUCT USED FOR UNKNOWN INDICATION
  3. DEPAKINE [Suspect]
     Active Substance: VALPROATE SODIUM
     Indication: PRODUCT USED FOR UNKNOWN INDICATION
     Route: 064

REACTIONS (45)
  - Hyperventilation [Unknown]
  - Dysarthria [Unknown]
  - Periodic limb movement disorder [Unknown]
  - Sleep apnoea syndrome [Unknown]
  - Neurodevelopmental disorder [Unknown]
  - Cephalhaematoma [Unknown]
  - Muscle disorder [Unknown]
  - Balance disorder [Unknown]
  - Somnolence [Unknown]
  - Tinnitus [Unknown]
  - Behaviour disorder [Unknown]
  - Tonsillar hypertrophy [Unknown]
  - Talipes [Unknown]
  - Hypotonia [Unknown]
  - Ankyloglossia congenital [Unknown]
  - Tooth disorder [Unknown]
  - Camptodactyly congenital [Unknown]
  - Restless legs syndrome [Unknown]
  - Autonomic nervous system imbalance [Unknown]
  - Enuresis [Unknown]
  - Foetal exposure during pregnancy [Unknown]
  - Limb malformation [Unknown]
  - Speech disorder developmental [Unknown]
  - Attention deficit hyperactivity disorder [Unknown]
  - Nightmare [Unknown]
  - Myopia [Unknown]
  - Prognathism [Unknown]
  - Conjunctival haemorrhage [Unknown]
  - Skin malformation [Unknown]
  - Congenital genital malformation [Unknown]
  - Memory impairment [Unknown]
  - Bronchitis [Unknown]
  - Gastrooesophageal reflux disease [Unknown]
  - Movement disorder [Unknown]
  - Visual impairment [Unknown]
  - Hydrocele [Unknown]
  - Foot deformity [Unknown]
  - Multiple congenital abnormalities [Unknown]
  - Dysmorphism [Unknown]
  - Vomiting [Unknown]
  - Disturbance in attention [Unknown]
  - Hypospadias [Unknown]
  - Ear infection [Unknown]
  - Adenoidal hypertrophy [Unknown]
  - Learning disorder [Unknown]
